FAERS Safety Report 8539917-5 (Version None)
Quarter: 2012Q3

REPORT INFORMATION
  Report Type: 
  Country: None (occurrence: None)
  Receive Date: 20120726
  Receipt Date: 20120711
  Transmission Date: 20120928
  Serious: Yes (Other)
  Sender: FDA-Public Use
  Company Number: IL-WATSON-2012-12532

PATIENT
  Sex: Female

DRUGS (3)
  1. CYCLOSPORINE [Suspect]
     Indication: GUILLAIN-BARRE SYNDROME
     Dosage: UNK
     Route: 065
  2. IMMUNOGLOBULIN                     /00025201/ [Suspect]
     Indication: GUILLAIN-BARRE SYNDROME
     Dosage: UNK
     Route: 042
  3. METHOTREXATE [Suspect]
     Indication: GUILLAIN-BARRE SYNDROME
     Dosage: UNK
     Route: 065

REACTIONS (1)
  - DRUG EFFECT DECREASED [None]
